FAERS Safety Report 9222181 (Version 1)
Quarter: 2013Q1

REPORT INFORMATION
  Report Type: Spontaneous
  Country: DE (occurrence: None)
  Receive Date: 20120914
  Receipt Date: 20120914
  Transmission Date: 20140127
  Serious: Yes (Hospitalization, Other)
  Sender: FDA-Public Use
  Company Number: JPI-P-020263

PATIENT
  Age: 52 Year
  Sex: Male

DRUGS (5)
  1. XYREM [Suspect]
     Indication: PRODUCT USED FOR UNKNOWN INDICATION
     Route: 048
     Dates: start: 201202
  2. FLUOXETINE HYDROCHLORIDE [Suspect]
     Indication: PRODUCT USED FOR UNKNOWN INDICATION
     Dosage: 20 MG, PATIENT TOOK 24 TABLETS (480 MG TOTAL)?
     Route: 048
  3. MODAFINIL (TABLETS) [Suspect]
     Dosage: PATIENT TOOK 30 TABLETS
  4. METHYLPHENIDATE [Suspect]
     Dosage: PATIENT TOOK 42 TABLETS?
  5. CAFFEINE [Suspect]
     Dosage: PATIENT TOOK 16 TABLETS?

REACTIONS (2)
  - Drug abuse [None]
  - Somnolence [None]
